FAERS Safety Report 7052163-X (Version None)
Quarter: 2010Q4

REPORT INFORMATION
  Report Type: 
  Country: None (occurrence: None)
  Receive Date: 20101013
  Receipt Date: 20101001
  Transmission Date: 20110411
  Serious: Yes (Hospitalization, Other)
  Sender: FDA-Public Use
  Company Number: 2010AL002417

PATIENT
  Age: 19 Year
  Sex: Female

DRUGS (8)
  1. FEVERALL [Suspect]
     Indication: INTENTIONAL OVERDOSE
     Dosage: PO
     Route: 048
     Dates: start: 20100413, end: 20100413
  2. PHENYLEPHRINE HCL [Suspect]
     Indication: INTENTIONAL OVERDOSE
     Dosage: PO
     Route: 048
     Dates: start: 20100413, end: 20100413
  3. THEOPHYLLINE [Suspect]
     Indication: INTENTIONAL OVERDOSE
     Dosage: PO
     Route: 048
     Dates: start: 20100413, end: 20100413
  4. ZOPICLONE (ZOPICLONE) [Suspect]
     Indication: INTENTIONAL OVERDOSE
     Dosage: 71.25 MG; PO
     Route: 048
     Dates: start: 20100413, end: 20100413
  5. AMOXICILLIN [Suspect]
     Indication: INTENTIONAL OVERDOSE
     Dosage: PO
     Route: 048
     Dates: start: 20100413, end: 20100413
  6. DIPHENHYDRAMINE HCL [Suspect]
     Indication: INTENTIONAL OVERDOSE
     Dosage: PO
     Route: 048
     Dates: start: 20100413, end: 20100413
  7. DO-DO CHEST-EZE (NO PREF. NAME) [Suspect]
     Indication: INTENTIONAL OVERDOSE
     Dosage: PO
     Route: 048
     Dates: start: 20100413, end: 20100413
  8. ALCOHOL (ETHANOL) [Suspect]
     Indication: INTENTIONAL OVERDOSE
     Dosage: PO
     Route: 048
     Dates: start: 20100413, end: 20100413

REACTIONS (4)
  - ALCOHOL USE [None]
  - BLOOD CREATINE PHOSPHOKINASE INCREASED [None]
  - MULTIPLE DRUG OVERDOSE INTENTIONAL [None]
  - MYALGIA [None]
